FAERS Safety Report 8298713-7 (Version None)
Quarter: 2012Q2

REPORT INFORMATION
  Report Type: 
  Country: None (occurrence: None)
  Receive Date: 20120419
  Receipt Date: 20120410
  Transmission Date: 20120825
  Serious: Yes (Hospitalization, Other)
  Sender: FDA-Public Use
  Company Number: US-ASTRAZENECA-2011SE64770

PATIENT
  Age: 72 Year
  Sex: Female

DRUGS (3)
  1. PRILOSEC [Suspect]
     Route: 048
  2. ARIMIDEX [Suspect]
     Route: 048
  3. NEXIUM [Suspect]
     Route: 048

REACTIONS (10)
  - MALAISE [None]
  - TENDON INJURY [None]
  - MYOCARDIAL INFARCTION [None]
  - PNEUMONIA [None]
  - MUSCLE INJURY [None]
  - JOINT INJURY [None]
  - CARDIAC DISORDER [None]
  - ROAD TRAFFIC ACCIDENT [None]
  - BREAST CANCER [None]
  - GALLBLADDER DISORDER [None]
